FAERS Safety Report 7081212-8 (Version None)
Quarter: 2010Q4

REPORT INFORMATION
  Report Type: 
  Country: None (occurrence: None)
  Receive Date: 20101025
  Receipt Date: 20101014
  Transmission Date: 20110411
  Serious: Yes (Hospitalization)
  Sender: FDA-Public Use
  Company Number: MC200900407

PATIENT
  Age: 66 Year
  Sex: Male
  Weight: 80 kg

DRUGS (28)
  1. ANGIOMAX [Suspect]
     Indication: PERCUTANEOUS CORONARY INTERVENTION
     Dosage: 12 ML BOLUS, IV BOLUS
     Route: 040
     Dates: start: 20090906, end: 20090906
  2. ANGIOMAX [Suspect]
     Dosage: 28 ML, HR, INTRAVENOUS ; 4 ML, HR, INTRAVENOUS
     Route: 042
     Dates: start: 20090906, end: 20090906
  3. ANGIOMAX [Suspect]
     Dosage: 28 ML, HR, INTRAVENOUS ; 4 ML, HR, INTRAVENOUS
     Route: 042
     Dates: start: 20090906, end: 20090906
  4. ASPIRIN [Suspect]
     Indication: ACUTE MYOCARDIAL INFARCTION
     Dosage: 100 MG, QD, ORAL
     Route: 048
     Dates: start: 20090906
  5. ASPIRIN [Suspect]
     Indication: CORONARY ARTERY DISEASE
     Dosage: 100 MG, QD, ORAL
     Route: 048
     Dates: start: 20090906
  6. ASPIRIN [Suspect]
     Indication: STENT PLACEMENT
     Dosage: 100 MG, QD, ORAL
     Route: 048
     Dates: start: 20090906
  7. CLOPIDOGREL [Suspect]
     Indication: ACUTE MYOCARDIAL INFARCTION
     Dosage: 600 MG, SINGLE (LOADING DOSE) ; 75 MG, QD, ORAL
     Route: 048
     Dates: start: 20090906, end: 20090906
  8. CLOPIDOGREL [Suspect]
     Indication: CORONARY ARTERY DISEASE
     Dosage: 600 MG, SINGLE (LOADING DOSE) ; 75 MG, QD, ORAL
     Route: 048
     Dates: start: 20090906, end: 20090906
  9. CLOPIDOGREL [Suspect]
     Indication: STENT PLACEMENT
     Dosage: 600 MG, SINGLE (LOADING DOSE) ; 75 MG, QD, ORAL
     Route: 048
     Dates: start: 20090906, end: 20090906
  10. CLOPIDOGREL [Suspect]
     Indication: ACUTE MYOCARDIAL INFARCTION
     Dosage: 600 MG, SINGLE (LOADING DOSE) ; 75 MG, QD, ORAL
     Route: 048
     Dates: start: 20090907
  11. CLOPIDOGREL [Suspect]
     Indication: CORONARY ARTERY DISEASE
     Dosage: 600 MG, SINGLE (LOADING DOSE) ; 75 MG, QD, ORAL
     Route: 048
     Dates: start: 20090907
  12. CLOPIDOGREL [Suspect]
     Indication: STENT PLACEMENT
     Dosage: 600 MG, SINGLE (LOADING DOSE) ; 75 MG, QD, ORAL
     Route: 048
     Dates: start: 20090907
  13. ENOXAPARIN SODIUM [Suspect]
     Indication: ATRIAL FIBRILLATION
     Dosage: 1.4 MG, QD, SUBCUTANEOUS ; 0.4 MG, QD, SUBCUTANEOUS
     Route: 058
     Dates: start: 20090908, end: 20090910
  14. ENOXAPARIN SODIUM [Suspect]
     Indication: ATRIAL FIBRILLATION
     Dosage: 1.4 MG, QD, SUBCUTANEOUS ; 0.4 MG, QD, SUBCUTANEOUS
     Route: 058
     Dates: start: 20090910, end: 20090915
  15. RAMIPRIL [Concomitant]
  16. RAMIPRIL [Concomitant]
  17. SIMVASTATIN [Concomitant]
  18. DIGITOXIN INJ [Concomitant]
  19. EBRANTIL (URAPIDIL) [Concomitant]
  20. METOPROLOL TARTRATE [Concomitant]
  21. EPLERENONE (EPLERENONE) [Concomitant]
  22. AMIODARON (AMIODARONE HYDROCHLORIDE) [Concomitant]
  23. BISOPROLOL (BISOPROLOL HEMIFUMARATE) [Concomitant]
  24. MOXONIDIN (MOXONIDINE) [Concomitant]
  25. LERCANIDIPINE [Concomitant]
  26. TORSEMIDE [Concomitant]
  27. MIDAZOLAM HCL [Concomitant]
  28. ETOMIDATE [Concomitant]

REACTIONS (1)
  - VASCULAR PSEUDOANEURYSM [None]
